FAERS Safety Report 6341818-8 (Version None)
Quarter: 2009Q3

REPORT INFORMATION
  Report Type: 
  Country: None (occurrence: None)
  Receive Date: 20090904
  Receipt Date: 20090827
  Transmission Date: 20100115
  Serious: Yes (Hospitalization)
  Sender: FDA-Public Use
  Company Number: US-BAXTER-2009BH013325

PATIENT
  Age: 39 Year
  Sex: Female
  Weight: 53 kg

DRUGS (2)
  1. DIANEAL [Suspect]
     Indication: RENAL FAILURE CHRONIC
     Route: 033
  2. NOVOLIN R [Suspect]
     Indication: TYPE 2 DIABETES MELLITUS
     Route: 058

REACTIONS (3)
  - BLOOD GLUCOSE DECREASED [None]
  - LETHARGY [None]
  - NAUSEA [None]
